FAERS Safety Report 22209090 (Version 1)
Quarter: 2023Q2

REPORT INFORMATION
  Report Type: Spontaneous
  Country: US (occurrence: US)
  Receive Date: 20230413
  Receipt Date: 20230413
  Transmission Date: 20230722
  Serious: Yes (Other)
  Sender: FDA-Public Use
  Company Number: US-DSPHARMA-2023SUN000500

PATIENT
  Age: 23 Year
  Sex: Female
  Weight: 99.32 kg

DRUGS (1)
  1. LATUDA [Suspect]
     Active Substance: LURASIDONE HYDROCHLORIDE
     Indication: Mood swings
     Dosage: 20 MG (FOR 4 YEARS)
     Route: 048

REACTIONS (42)
  - Thrombosis [Unknown]
  - Petit mal epilepsy [Unknown]
  - Syncope [Unknown]
  - Fibrin D dimer increased [Unknown]
  - Gait inability [Unknown]
  - Sleep terror [Unknown]
  - Candida infection [Unknown]
  - Pallor [Unknown]
  - Staring [Unknown]
  - Acne [Recovered/Resolved]
  - Neck pain [Unknown]
  - Pollakiuria [Unknown]
  - Feeling abnormal [Unknown]
  - Peripheral swelling [Unknown]
  - Speech disorder [Unknown]
  - Memory impairment [Unknown]
  - Breast swelling [Unknown]
  - Blood cholesterol increased [Unknown]
  - Hepatic steatosis [Unknown]
  - Confusional state [Unknown]
  - Hypoaesthesia [Unknown]
  - Chest discomfort [Unknown]
  - Gait disturbance [Unknown]
  - Sleep apnoea syndrome [Unknown]
  - Urinary tract infection [Unknown]
  - Dyspnoea [Unknown]
  - Headache [Unknown]
  - Vision blurred [Unknown]
  - Weight increased [Unknown]
  - Hypokinesia [Unknown]
  - Musculoskeletal stiffness [Unknown]
  - Breast pain [Unknown]
  - Dizziness [Unknown]
  - Insomnia [Unknown]
  - Somnolence [Unknown]
  - Dry mouth [Unknown]
  - Rash [Unknown]
  - Urticaria [Unknown]
  - Abdominal pain upper [Unknown]
  - Vomiting [Unknown]
  - Hypersensitivity [Unknown]
  - Off label use [Unknown]

NARRATIVE: CASE EVENT DATE: 20230401
